FAERS Safety Report 5189013-2 (Version None)
Quarter: 2006Q4

REPORT INFORMATION
  Report Type: 
  Country: None (occurrence: None)
  Receive Date: 20061221
  Receipt Date: 20050620
  Transmission Date: 20070319
  Serious: No
  Sender: FDA-Public Use
  Company Number: US-AMGEN-US139321

PATIENT
  Sex: Male

DRUGS (2)
  1. ENBREL [Suspect]
     Indication: PSORIASIS
     Route: 058
     Dates: start: 20050427, end: 20050615
  2. ULTRAVATE [Concomitant]
     Dates: start: 20050412

REACTIONS (2)
  - HEADACHE [None]
  - VISION BLURRED [None]
